FAERS Safety Report 6024623-1 (Version None)
Quarter: 2008Q4

REPORT INFORMATION
  Report Type: 
  Country: None (occurrence: None)
  Receive Date: 20081224
  Receipt Date: 20081211
  Transmission Date: 20090506
  Serious: Yes (Death)
  Sender: FDA-Public Use
  Company Number: 1000003246

PATIENT
  Sex: Female

DRUGS (3)
  1. MEMANTINE HCL [Suspect]
     Indication: DEMENTIA
     Dosage: ORAL; 20 MG (20 MG, 1 IN 1 D), ORAL
     Route: 048
  2. VENLAFAXINE HCL [Concomitant]
  3. RISPERDAL [Concomitant]

REACTIONS (1)
  - COMPLETED SUICIDE [None]
